FAERS Safety Report 25785884 (Version 1)
Quarter: 2025Q3

REPORT INFORMATION
  Report Type: Report from Study
  Country: US (occurrence: US)
  Receive Date: 20250910
  Receipt Date: 20250910
  Transmission Date: 20251021
  Serious: Yes (Hospitalization)
  Sender: GILEAD
  Company Number: US-GILEAD-2025-0727170

PATIENT
  Age: 75 Year
  Sex: Male

DRUGS (38)
  1. AZTREONAM LYSINE [Suspect]
     Active Substance: AZTREONAM LYSINE
     Indication: Bronchiectasis
     Dosage: 75 MG, TID (INHALE 75 MG VIA ALTERA NEBULIZER EVERY 8 HOURS CYCLING FOR 28 DAYS ON AND 28 DAYS OFF)
     Route: 055
  2. ELIQUIS [Concomitant]
     Active Substance: APIXABAN
  3. FLECAINIDE ACETATE [Concomitant]
     Active Substance: FLECAINIDE ACETATE
  4. TRAMADOL [Concomitant]
     Active Substance: TRAMADOL
  5. ATORVASTATIN CALCIUM [Concomitant]
     Active Substance: ATORVASTATIN CALCIUM
  6. DIGOXIN [Concomitant]
     Active Substance: DIGOXIN
  7. TRAZODONE HYDROCHLORIDE [Concomitant]
     Active Substance: TRAZODONE HYDROCHLORIDE
  8. LASIX [Concomitant]
     Active Substance: FUROSEMIDE
  9. OMEPRAZOLE [Concomitant]
     Active Substance: OMEPRAZOLE
  10. FAMOTIDINE [Concomitant]
     Active Substance: FAMOTIDINE
  11. TAMSULOSIN HYDROCHLORIDE [Concomitant]
     Active Substance: TAMSULOSIN HYDROCHLORIDE
  12. ALBUTEROL\IPRATROPIUM [Concomitant]
     Active Substance: ALBUTEROL\IPRATROPIUM
  13. GRAPE SEED [VITIS VINIFERA SEED] [Concomitant]
  14. VIAGRA [Concomitant]
     Active Substance: SILDENAFIL CITRATE
  15. BUDESONIDE [Concomitant]
     Active Substance: BUDESONIDE
  16. FLONASE ALLERGY RELIEF [Concomitant]
     Active Substance: FLUTICASONE PROPIONATE
  17. ADVAIR HFA [Concomitant]
     Active Substance: FLUTICASONE PROPIONATE\SALMETEROL XINAFOATE
  18. IPRATROPIUM [Concomitant]
     Active Substance: IPRATROPIUM
  19. TYLENOL [Concomitant]
     Active Substance: ACETAMINOPHEN
  20. SPIRIVA [Concomitant]
     Active Substance: TIOTROPIUM BROMIDE MONOHYDRATE
  21. VITAMIN B12 [Concomitant]
     Active Substance: CYANOCOBALAMIN
  22. GABAPENTIN [Concomitant]
     Active Substance: GABAPENTIN
  23. MAGNESIUM [Concomitant]
     Active Substance: MAGNESIUM
  24. SAW PALMETTO [CUCURBITA PEPO OIL;SERENOA REPENS;ZINC GLUCONATE] [Concomitant]
  25. ZINC [Concomitant]
     Active Substance: ZINC
  26. GARLIC (DEODORIZED) [Concomitant]
  27. SELENIUM [Concomitant]
     Active Substance: SELENIUM
  28. VITAMIN D2 [Concomitant]
     Active Substance: ERGOCALCIFEROL
  29. BIOTIN [Concomitant]
     Active Substance: BIOTIN
  30. HERBALS\TURMERIC [Concomitant]
     Active Substance: HERBALS\TURMERIC
  31. CHONDROITIN SULFATE (BOVINE) [Concomitant]
     Active Substance: CHONDROITIN SULFATE (BOVINE)
  32. GREEN TEA EXTRACT [CAMELLIA SINENSIS] [Concomitant]
  33. MUCINEX [Concomitant]
     Active Substance: GUAIFENESIN
  34. ZINGIBER OFFICINALE (GINGER) ROOT [Concomitant]
     Active Substance: GINGER
  35. VITAMIN D3 [Concomitant]
     Active Substance: CHOLECALCIFEROL
  36. VITAMIN C [Concomitant]
     Active Substance: ASCORBIC ACID
  37. MONTELUKAST SODIUM [Concomitant]
     Active Substance: MONTELUKAST SODIUM
  38. GLUCOSAMINE [Concomitant]
     Active Substance: GLUCOSAMINE

REACTIONS (4)
  - Wound infection [Recovering/Resolving]
  - Skin laceration [Recovering/Resolving]
  - Fall [Recovered/Resolved]
  - Product use in unapproved indication [Unknown]

NARRATIVE: CASE EVENT DATE: 20250821
